FAERS Safety Report 11254200 (Version 1)
Quarter: 2015Q3

REPORT INFORMATION
  Report Type: Spontaneous
  Country: CA (occurrence: CA)
  Receive Date: 20150709
  Receipt Date: 20150709
  Transmission Date: 20151125
  Serious: Yes (Other)
  Sender: FDA-Public Use
  Company Number: CA-BAUSCH-BL-2015-016333

PATIENT
  Age: 53 Year
  Sex: Male

DRUGS (3)
  1. ALBUTEROL. [Suspect]
     Active Substance: ALBUTEROL
     Indication: ASTHMA
     Dosage: INHALER; MORE THAN SIX TIMES DAILY.
  2. FLUTICASONE/ SALMETEROL [Concomitant]
     Indication: ASTHMA
  3. ALBUTEROL. [Suspect]
     Active Substance: ALBUTEROL
     Indication: CHEST PAIN

REACTIONS (2)
  - Stress cardiomyopathy [Unknown]
  - Intentional overdose [Unknown]
